FAERS Safety Report 7773443-6 (Version None)
Quarter: 2011Q3

REPORT INFORMATION
  Report Type: 
  Country: None (occurrence: None)
  Receive Date: 20110922
  Receipt Date: 20110913
  Transmission Date: 20111222
  Serious: Yes (Other)
  Sender: FDA-Public Use
  Company Number: US-ASTRAZENECA-2011SE27623

PATIENT
  Age: 36 Year
  Sex: Female
  Weight: 59.4 kg

DRUGS (6)
  1. SINGULAIR [Concomitant]
     Indication: ASTHMA
     Route: 048
     Dates: start: 20110128
  2. THYROID TAB [Concomitant]
  3. XOPENEX HFA [Concomitant]
     Indication: ASTHMA
     Dosage: 2 PUFFS, 4-6 PRN
     Route: 055
     Dates: start: 20110126, end: 20110427
  4. SYMBICORT [Suspect]
     Indication: ASTHMA
     Dosage: 160/4.5 MCG 2 PUFFS BID
     Route: 055
     Dates: start: 20110215, end: 20110427
  5. QVAR 40 [Concomitant]
     Indication: ASTHMA
     Dosage: 2 PUFFS BID
     Route: 055
     Dates: start: 20110524
  6. ALLEGRA [Concomitant]
     Indication: HYPERSENSITIVITY
     Route: 048
     Dates: start: 20110126

REACTIONS (5)
  - CONSCIOUSNESS FLUCTUATING [None]
  - ADVERSE DRUG REACTION [None]
  - PRESYNCOPE [None]
  - GAIT DISTURBANCE [None]
  - ASTHENIA [None]
